FAERS Safety Report 8923492 (Version 1)
Quarter: 2012Q4

REPORT INFORMATION
  Report Type: 
  Country: SE (occurrence: SE)
  Receive Date: 20121123
  Receipt Date: 20121123
  Transmission Date: 20130627
  Serious: Yes (Hospitalization)
  Sender: FDA-Public Use
  Company Number: SE-PFIZER INC-2012290778

PATIENT
  Age: 85 Year
  Sex: Female

DRUGS (6)
  1. TAZOCIN [Suspect]
     Indication: ESCHERICHIA SEPSIS
     Dosage: UNK
     Dates: start: 20120718, end: 20120721
  2. CIPROFLOXACIN HCL [Suspect]
     Indication: ESCHERICHIA SEPSIS
     Dosage: UNK
     Route: 048
     Dates: start: 20120721
  3. VAGIFEM [Concomitant]
     Dosage: UNK
  4. KALCIPOS-D [Concomitant]
     Dosage: UNK
     Route: 048
  5. ALENDRONATE [Concomitant]
     Dosage: UNK
  6. BEHEPAN [Concomitant]
     Dosage: UNK

REACTIONS (4)
  - Transaminases increased [Not Recovered/Not Resolved]
  - Pyrexia [None]
  - Nausea [None]
  - Chills [None]
